FAERS Safety Report 4913090-4 (Version None)
Quarter: 2006Q1

REPORT INFORMATION
  Report Type: 
  Country: None (occurrence: None)
  Receive Date: 20060210
  Receipt Date: 20060127
  Transmission Date: 20060701
  Serious: Yes (Hospitalization)
  Sender: FDA-Public Use
  Company Number: 2006020005

PATIENT
  Age: 69 Year
  Sex: Female

DRUGS (8)
  1. DORAL [Suspect]
     Indication: INSOMNIA
     Dosage: 15 MG, 1 IN 1 D , ORAL
     Route: 048
     Dates: start: 20051201, end: 20051217
  2. LENDORM [Suspect]
     Indication: INSOMNIA
     Dosage: 0.25 MG 1 IN 1 D
     Dates: end: 20051217
  3. ZANTAC [Concomitant]
  4. PREDNISOLONE [Concomitant]
  5. ALFACALCIDOL (ALFACALICIDOL) [Concomitant]
  6. BLOPRESS (CANDESARTAN CILEXETIL) [Concomitant]
  7. AMLODIPINE BESYLATE [Concomitant]
  8. THEO-DUR [Concomitant]

REACTIONS (3)
  - DEPRESSED LEVEL OF CONSCIOUSNESS [None]
  - DISORIENTATION [None]
  - HAEMODIALYSIS [None]
